FAERS Safety Report 5763857-8 (Version None)
Quarter: 2008Q2

REPORT INFORMATION
  Report Type: 
  Country: None (occurrence: None)
  Receive Date: 20080602
  Receipt Date: 20080305
  Transmission Date: 20081010
  Serious: Yes (Other)
  Sender: FDA-Public Use
  Company Number: PHEH2008US02489

PATIENT
  Sex: Male

DRUGS (4)
  1. TEKTURNA [Suspect]
     Indication: HYPERTENSION
     Dosage: 150 MG, QD, ORAL
     Route: 048
  2. ANGIOTENSIN II ANTAGONISTS (NO INGREDIENTS/SUBSTANCES) [Concomitant]
  3. BETA BLOCKING AGENTS (NO INGREDIENTS/SUBSTANCES) [Concomitant]
  4. CALCIUM CHANNEL BLOCKERS (NO INGREDIENTS/SUBSTANCES) [Concomitant]

REACTIONS (1)
  - BLOOD POTASSIUM INCREASED [None]
